FAERS Safety Report 9863261 (Version 2)
Quarter: 2014Q1

REPORT INFORMATION
  Report Type: Spontaneous
  Country: US (occurrence: US)
  Receive Date: 20140203
  Receipt Date: 20140228
  Transmission Date: 20141002
  Serious: No
  Sender: FDA-Public Use
  Company Number: US-009507513-1402USA000645

PATIENT
  Age: 74 Year
  Sex: Female
  Weight: 64.85 kg

DRUGS (10)
  1. OXYTROL FOR WOMEN [Suspect]
     Indication: POLLAKIURIA
     Dosage: 1 DF, Q4D
     Route: 062
     Dates: start: 20131115
  2. OXYTROL FOR WOMEN [Suspect]
     Indication: INCONTINENCE
  3. LIPITOR [Concomitant]
     Indication: PRODUCT USED FOR UNKNOWN INDICATION
     Dosage: UNK, UNKNOWN
  4. ATORVASTATIN [Concomitant]
     Indication: BLOOD CHOLESTEROL INCREASED
     Dosage: 10 MG, UNKNOWN
  5. AMLODIPINE BESYLATE [Concomitant]
     Indication: HYPERTENSION
     Dosage: 10 MG, UNKNOWN
  6. VITAMIN D (UNSPECIFIED) [Concomitant]
     Indication: BONE LOSS
     Dosage: 50000 IU, UNKNOWN
  7. CALCIUM (UNSPECIFIED) (+) VITAMIN D (UNSPECIFIED) [Concomitant]
     Indication: BONE LOSS
     Dosage: UNK, UNKNOWN
  8. GARLIC [Concomitant]
     Indication: PRODUCT USED FOR UNKNOWN INDICATION
     Dosage: 2000 MG, UNKNOWN
  9. OMEGA-3 MARINE TRIGLYCERIDES [Concomitant]
     Indication: PRODUCT USED FOR UNKNOWN INDICATION
     Dosage: UNK, UNKNOWN
  10. CINNAMON [Concomitant]
     Indication: PRODUCT USED FOR UNKNOWN INDICATION
     Dosage: UNK, UNKNOWN

REACTIONS (1)
  - Erythema [Recovering/Resolving]
